FAERS Safety Report 10149843 (Version 1)
Quarter: 2014Q2

REPORT INFORMATION
  Report Type: Spontaneous
  Country: US (occurrence: None)
  Receive Date: 20140501
  Receipt Date: 20140501
  Transmission Date: 20141212
  Serious: Yes (Hospitalization)
  Sender: FDA-Public Use
  Company Number: None

PATIENT
  Age: 65 Year
  Sex: Male

DRUGS (11)
  1. HYDROMORPHONE [Suspect]
     Indication: WRONG DRUG ADMINISTERED
     Dosage: 2 MG ONCE IV
     Route: 042
     Dates: start: 20131109, end: 20131109
  2. ACYCLOVIR [Concomitant]
  3. CARVEDILOL [Concomitant]
  4. CEFEPIME [Concomitant]
  5. DIGOXIN [Concomitant]
  6. EMTRICITABINE + TENOFOVIR [Concomitant]
  7. ENALAPRIL [Concomitant]
  8. FUROSEMIDE [Concomitant]
  9. LEVETIRACETAM [Concomitant]
  10. MAGNESIUM OXIDE [Concomitant]
  11. METOPROLOL TARTRATE [Concomitant]

REACTIONS (2)
  - Respiratory distress [None]
  - Wrong drug administered [None]
